FAERS Safety Report 4511855-4 (Version None)
Quarter: 2004Q4

REPORT INFORMATION
  Report Type: 
  Country: None (occurrence: None)
  Receive Date: 20041129
  Receipt Date: 20030605
  Transmission Date: 20050328
  Serious: Yes (Hospitalization, Disabling, Other)
  Sender: FDA-Public Use
  Company Number: US-MERCK-0306USA00805

PATIENT
  Age: 66 Year
  Sex: Female
  Weight: 140 kg

DRUGS (5)
  1. VIOXX [Suspect]
     Indication: BACK PAIN
     Route: 048
  2. VIOXX [Suspect]
     Indication: ARTHRALGIA
     Route: 048
  3. LOTREL [Concomitant]
     Route: 048
     Dates: start: 19990101
  4. LASIX [Concomitant]
     Route: 065
     Dates: start: 19990101
  5. NOLVADEX [Concomitant]
     Route: 065
     Dates: start: 19950101, end: 20000701

REACTIONS (23)
  - ADVERSE EVENT [None]
  - ANAEMIA [None]
  - AORTIC VALVE INCOMPETENCE [None]
  - ARTHROPATHY [None]
  - ATHEROSCLEROSIS [None]
  - CARDIAC FAILURE CONGESTIVE [None]
  - CERVICAL POLYP [None]
  - CHOLELITHIASIS [None]
  - FALL [None]
  - GALLBLADDER DISORDER [None]
  - HYPERPLASIA [None]
  - HYPERTENSION [None]
  - MITRAL VALVE INCOMPETENCE [None]
  - PNEUMONIA [None]
  - POLYTRAUMATISM [None]
  - POSTMENOPAUSAL HAEMORRHAGE [None]
  - RENAL FAILURE [None]
  - SINUS DISORDER [None]
  - TRICUSPID VALVE INCOMPETENCE [None]
  - UTERINE LEIOMYOMA [None]
  - UTERINE POLYP [None]
  - VAGINAL ULCERATION [None]
  - WRIST FRACTURE [None]
